FAERS Safety Report 7018732-8 (Version None)
Quarter: 2010Q3

REPORT INFORMATION
  Report Type: 
  Country: None (occurrence: None)
  Receive Date: 20100928
  Receipt Date: 20100917
  Transmission Date: 20110219
  Serious: Yes (Other)
  Sender: FDA-Public Use
  Company Number: US-JNJCH-2010021294

PATIENT
  Sex: Female
  Weight: 61.7 kg

DRUGS (2)
  1. VISINE-A [Suspect]
     Indication: EYE PRURITUS
     Dosage: TEXT:1 DROP IN EACH EYE 2-3 DROPS A WEEK
     Route: 047
  2. VISINE-A [Suspect]
     Indication: OCULAR HYPERAEMIA

REACTIONS (4)
  - DRY EYE [None]
  - LENS DISORDER [None]
  - METAMORPHOPSIA [None]
  - VISUAL IMPAIRMENT [None]
